FAERS Safety Report 21761786 (Version 1)
Quarter: 2022Q4

REPORT INFORMATION
  Report Type: Spontaneous
  Country: US (occurrence: US)
  Receive Date: 20221221
  Receipt Date: 20221221
  Transmission Date: 20230113
  Serious: No
  Sender: FDA-Public Use
  Company Number: US-BRISTOL-MYERS SQUIBB COMPANY-2022-154032

PATIENT
  Age: 77 Year
  Sex: Male
  Weight: 82.1 kg

DRUGS (1)
  1. LENALIDOMIDE [Suspect]
     Active Substance: LENALIDOMIDE
     Indication: Polycythaemia
     Dosage: FREQ: ONE CAPSULE DAILY MONDAY THROUGH FRIDAYS OF EVERY 28-DAY CYCLE
     Route: 048
     Dates: start: 20220217

REACTIONS (3)
  - Nasopharyngitis [Not Recovered/Not Resolved]
  - Blood potassium decreased [Unknown]
  - Off label use [Unknown]

NARRATIVE: CASE EVENT DATE: 20221207
